FAERS Safety Report 20924682 (Version 1)
Quarter: 2022Q2

REPORT INFORMATION
  Report Type: Spontaneous
  Country: US (occurrence: None)
  Receive Date: 20220607
  Receipt Date: 20220607
  Transmission Date: 20220721
  Serious: Yes (Hospitalization, Other)
  Sender: FDA-Public Use
  Company Number: None

PATIENT
  Age: 47 Year
  Sex: Female
  Weight: 80.55 kg

DRUGS (8)
  1. PAXLOVID [Suspect]
     Active Substance: NIRMATRELVIR\RITONAVIR
     Indication: COVID-19 treatment
     Dosage: OTHER QUANTITY : 3 CAPSULE(S);?FREQUENCY : TWICE A DAY;?
     Route: 048
     Dates: start: 20220527, end: 20220601
  2. PROPRANOLOL [Concomitant]
     Active Substance: PROPRANOLOL HYDROCHLORIDE
  3. Dilitazem to control cardiac arrhythmia and blood pressure [Concomitant]
  4. TYLENOL [Concomitant]
     Active Substance: ACETAMINOPHEN
  5. ZINC [Concomitant]
     Active Substance: ZINC
  6. VITAMIN D [Concomitant]
     Active Substance: VITAMIN D NOS
  7. HERBALS [Concomitant]
     Active Substance: HERBALS
  8. VITAMINS [Concomitant]
     Active Substance: VITAMINS

REACTIONS (9)
  - COVID-19 [None]
  - Cough [None]
  - Paranasal sinus discomfort [None]
  - Sinus congestion [None]
  - Headache [None]
  - Fatigue [None]
  - SARS-CoV-2 test positive [None]
  - Chest pain [None]
  - Rebound effect [None]

NARRATIVE: CASE EVENT DATE: 20220605
